FAERS Safety Report 11350455 (Version 3)
Quarter: 2016Q1

REPORT INFORMATION
  Report Type: Spontaneous
  Country: US (occurrence: US)
  Receive Date: 20150807
  Receipt Date: 20160208
  Transmission Date: 20160525
  Serious: Yes (Death, Hospitalization, Other)
  Sender: FDA-Public Use
  Company Number: US-009507513-1508USA002625

PATIENT
  Sex: Female
  Weight: 132.6 kg

DRUGS (4)
  1. JANUMET [Suspect]
     Active Substance: METFORMIN HYDROCHLORIDE\SITAGLIPTIN PHOSPHATE
     Indication: TYPE 2 DIABETES MELLITUS
     Dosage: 50/500 MG, BID
     Route: 048
     Dates: start: 2007, end: 2012
  2. LISINOPRIL. [Concomitant]
     Active Substance: LISINOPRIL
     Dosage: 5 MG, QD
     Route: 048
     Dates: start: 2008, end: 2012
  3. JANUMET [Suspect]
     Active Substance: METFORMIN HYDROCHLORIDE\SITAGLIPTIN PHOSPHATE
     Dosage: 50/1000 MG, BID
     Route: 048
     Dates: start: 20070627, end: 20120908
  4. GLYBURIDE (+) METFORMIN HYDROCHLORIDE [Concomitant]
     Indication: TYPE 2 DIABETES MELLITUS
     Dosage: UNK
     Dates: start: 2006, end: 2014

REACTIONS (17)
  - Chest pain [Unknown]
  - Pyuria [Unknown]
  - Hypotension [Unknown]
  - Cataract operation [Unknown]
  - Hyperkalaemia [Unknown]
  - Iron deficiency anaemia [Unknown]
  - Nasopharyngitis [Unknown]
  - Gastrooesophageal reflux disease [Unknown]
  - Insulin-requiring type 2 diabetes mellitus [Unknown]
  - Arrhythmia [Unknown]
  - Hypertension [Unknown]
  - Diverticulum intestinal [Unknown]
  - Hepatic cyst [Unknown]
  - Hyponatraemia [Unknown]
  - Adenocarcinoma pancreas [Fatal]
  - Pancreatitis [Unknown]
  - Malaise [Unknown]

NARRATIVE: CASE EVENT DATE: 20070626
